FAERS Safety Report 21000791 (Version 3)
Quarter: 2022Q4

REPORT INFORMATION
  Report Type: Report from Study
  Country: BR (occurrence: BR)
  Receive Date: 20220623
  Receipt Date: 20221208
  Transmission Date: 20230113
  Serious: Yes (Hospitalization, Other)
  Sender: FDA-Public Use
  Company Number: BR-JNJFOC-20220634929

PATIENT
  Age: 65 Year
  Sex: Female

DRUGS (2)
  1. SIMPONI [Suspect]
     Active Substance: GOLIMUMAB
     Indication: Rheumatoid arthritis
     Dosage: 27-JUL-2017
     Route: 058
     Dates: start: 2017
  2. SIMPONI [Suspect]
     Active Substance: GOLIMUMAB

REACTIONS (6)
  - Oxygen saturation decreased [Unknown]
  - Dengue haemorrhagic fever [Not Recovered/Not Resolved]
  - Erysipelas [Unknown]
  - Foot fracture [Unknown]
  - Wound [Unknown]
  - Influenza [Unknown]

NARRATIVE: CASE EVENT DATE: 20220203
